FAERS Safety Report 25245580 (Version 1)
Quarter: 2025Q2

REPORT INFORMATION
  Report Type: Spontaneous
  Country: US (occurrence: US)
  Receive Date: 20250428
  Receipt Date: 20250428
  Transmission Date: 20250716
  Serious: Yes (Hospitalization)
  Sender: AMGEN
  Company Number: US-AMGEN-USASP2025082269

PATIENT
  Age: 74 Year
  Sex: Female

DRUGS (2)
  1. PREDNISONE [Suspect]
     Active Substance: PREDNISONE
     Indication: Pericarditis
     Route: 065
  2. NAPROXEN [Concomitant]
     Active Substance: NAPROXEN
     Indication: Pericarditis

REACTIONS (6)
  - Cardiac failure [Unknown]
  - Pericarditis constrictive [Unknown]
  - Cardiogenic shock [Unknown]
  - Pericardial mesothelioma malignant [Unknown]
  - Drug effective for unapproved indication [Unknown]
  - Off label use [Unknown]
